FAERS Safety Report 6408549-7 (Version None)
Quarter: 2009Q4

REPORT INFORMATION
  Report Type: 
  Country: None (occurrence: None)
  Receive Date: 20091019
  Receipt Date: 20090924
  Transmission Date: 20100525
  Serious: Yes (Other)
  Sender: FDA-Public Use
  Company Number: WAES 0910USA00532

PATIENT
  Age: 69 Year
  Sex: Female

DRUGS (1)
  1. MEVACOR [Suspect]
     Indication: ISCHAEMIC STROKE
     Dosage: 6 MG/KG/DAILY/PO
     Route: 048

REACTIONS (1)
  - RENAL FAILURE ACUTE [None]
